FAERS Safety Report 18491076 (Version 1)
Quarter: 2020Q4

REPORT INFORMATION
  Report Type: Spontaneous
  Country: US (occurrence: US)
  Receive Date: 20201111
  Receipt Date: 20201111
  Transmission Date: 20210114
  Serious: No
  Sender: FDA-Public Use
  Company Number: US-PERRIGO-20US008636

PATIENT
  Age: 81 Year
  Sex: Female
  Weight: 58.05 kg

DRUGS (2)
  1. FAMOTIDINE. [Suspect]
     Active Substance: FAMOTIDINE
     Dosage: 20 MG, TID
     Route: 048
     Dates: start: 202006
  2. FAMOTIDINE. [Suspect]
     Active Substance: FAMOTIDINE
     Indication: HYPERCHLORHYDRIA
     Dosage: 20 MG, TID
     Route: 048
     Dates: end: 202006

REACTIONS (2)
  - Incorrect dose administered [Unknown]
  - Incorrect product administration duration [Unknown]
